FAERS Safety Report 7372539-0 (Version None)
Quarter: 2011Q1

REPORT INFORMATION
  Report Type: 
  Country: None (occurrence: None)
  Receive Date: 20110315
  Receipt Date: 20110228
  Transmission Date: 20110831
  Serious: Yes (Hospitalization)
  Sender: FDA-Public Use
  Company Number: AUR-APL-2011-00808

PATIENT
  Age: 86 Year
  Sex: Female

DRUGS (6)
  1. BISOPROLOL [Suspect]
     Indication: ACUTE CORONARY SYNDROME
     Dosage: 2.5MG-DAILY-ORAL
     Route: 048
     Dates: start: 20110125
  2. AMLODIPINE [Concomitant]
  3. CLOPIDOGREL [Concomitant]
  4. VALSARATAN [Concomitant]
  5. ASPIRIN [Concomitant]
  6. BENDROFLUMETHIAZIDE [Concomitant]

REACTIONS (6)
  - MALAISE [None]
  - HYPOAESTHESIA [None]
  - PARAESTHESIA [None]
  - NAUSEA [None]
  - GASTRIC DISORDER [None]
  - MUSCLE SPASMS [None]
